FAERS Safety Report 8576625-9 (Version None)
Quarter: 2012Q3

REPORT INFORMATION
  Report Type: 
  Country: None (occurrence: None)
  Receive Date: 20120807
  Receipt Date: 20120112
  Transmission Date: 20120928
  Serious: Yes (Hospitalization, Other)
  Sender: FDA-Public Use
  Company Number: US-ROCHE-1098273

PATIENT
  Sex: Female

DRUGS (11)
  1. XOLAIR [Suspect]
     Indication: ASTHMA
  2. XOLAIR [Suspect]
     Indication: RHINITIS ALLERGIC
  3. ALBUTEROL [Concomitant]
  4. FLUTICASONE PROPIONATE [Concomitant]
     Dosage: 500/50
  5. PRILOSEC [Concomitant]
  6. TESSALON [Concomitant]
  7. SINGULAIR [Concomitant]
  8. VERAMYST [Concomitant]
  9. FEXOFENADINE [Concomitant]
  10. NASONEX [Concomitant]
  11. ASTELIN [Concomitant]

REACTIONS (5)
  - DYSPNOEA [None]
  - UPPER RESPIRATORY TRACT INFECTION [None]
  - ASTHMA [None]
  - COUGH [None]
  - WHEEZING [None]
